FAERS Safety Report 5564069-3 (Version None)
Quarter: 2007Q4

REPORT INFORMATION
  Report Type: 
  Country: None (occurrence: None)
  Receive Date: 20071217
  Receipt Date: 20071211
  Transmission Date: 20080405
  Serious: Yes (Hospitalization)
  Sender: FDA-Public Use
  Company Number: IT-BOEHRINGER INGELHEIM PHARMACEUTICALS, INC.-2007-IT-00302IT

PATIENT
  Sex: Male
  Weight: 72 kg

DRUGS (3)
  1. TIPRANAVIR+RITONAVIR CO-ADMIN [Suspect]
     Indication: HIV INFECTION
     Dosage: 1000MG TIPRANAVIR + 400MG RITONAVIR
     Route: 048
     Dates: start: 20030925
  2. DIDANOSINE [Concomitant]
     Indication: HIV INFECTION
     Route: 048
     Dates: start: 20030925
  3. TENOFOVIR DISOPROXIL FUMARATE [Concomitant]
     Indication: HIV INFECTION
     Route: 048
     Dates: start: 20030925

REACTIONS (1)
  - NERVOUS SYSTEM DISORDER [None]
